FAERS Safety Report 20254663 (Version 2)
Quarter: 2022Q1

REPORT INFORMATION
  Report Type: Spontaneous
  Country: GB (occurrence: GB)
  Receive Date: 20211230
  Receipt Date: 20220118
  Transmission Date: 20220423
  Serious: Yes (Other)
  Sender: FDA-Public Use
  Company Number: GB-SANOFI-00906634

PATIENT

DRUGS (2)
  1. PRALUENT [Suspect]
     Active Substance: ALIROCUMAB
     Indication: Cardiovascular disorder
     Dosage: UNK
  2. PRALUENT [Suspect]
     Active Substance: ALIROCUMAB
     Indication: Type IIa hyperlipidaemia

REACTIONS (1)
  - Diabetes mellitus [Unknown]
